FAERS Safety Report 4522673-5 (Version None)
Quarter: 2004Q4

REPORT INFORMATION
  Report Type: 
  Country: None (occurrence: None)
  Receive Date: 20041207
  Receipt Date: 20041118
  Transmission Date: 20050328
  Serious: Yes (Other)
  Sender: FDA-Public Use
  Company Number: DE_041114728

PATIENT
  Age: 67 Year
  Sex: Female

DRUGS (2)
  1. GEMZAR [Suspect]
     Indication: OVARIAN CANCER
     Dates: start: 20040101
  2. ANTIEMETICS [Concomitant]

REACTIONS (8)
  - ERYSIPELAS [None]
  - ERYTHEMA [None]
  - HYPERTHERMIA [None]
  - INFLAMMATION [None]
  - NEUTROPENIA [None]
  - PAIN [None]
  - PYREXIA [None]
  - THROMBOPHLEBITIS [None]
